FAERS Safety Report 9679211 (Version 3)
Quarter: 2014Q1

REPORT INFORMATION
  Report Type: Spontaneous
  Country: US (occurrence: US)
  Receive Date: 20131108
  Receipt Date: 20140120
  Transmission Date: 20141002
  Serious: Yes (Other)
  Sender: FDA-Public Use
  Company Number: US-ABBVIE-13P-163-1165100-00

PATIENT
  Age: 44 Year
  Sex: Female
  Weight: 80.81 kg

DRUGS (6)
  1. HUMIRA [Suspect]
     Indication: PSORIASIS
     Dates: start: 20121128, end: 20121128
  2. HUMIRA [Suspect]
     Dates: start: 201212, end: 20131007
  3. LOPID [Concomitant]
     Indication: PRODUCT USED FOR UNKNOWN INDICATION
  4. GLUCOSAMINE [Concomitant]
     Indication: PRODUCT USED FOR UNKNOWN INDICATION
  5. MULTIVITAMIN [Concomitant]
     Indication: VITAMIN SUPPLEMENTATION
  6. PRILOSEC [Concomitant]
     Indication: PRODUCT USED FOR UNKNOWN INDICATION

REACTIONS (5)
  - Hypoaesthesia [Unknown]
  - White matter lesion [Unknown]
  - Intervertebral disc disorder [Unknown]
  - Multiple sclerosis [Not Recovered/Not Resolved]
  - Optic nerve injury [Unknown]
